FAERS Safety Report 22155518 (Version 1)
Quarter: 2023Q1

REPORT INFORMATION
  Report Type: Spontaneous
  Country: US (occurrence: US)
  Receive Date: 20230330
  Receipt Date: 20230330
  Transmission Date: 20230417
  Serious: Yes (Hospitalization)
  Sender: FDA-Public Use
  Company Number: US-MYLANLABS-2023M1033576

PATIENT
  Age: 49 Year
  Sex: Female

DRUGS (1)
  1. PAMIDRONATE [Suspect]
     Active Substance: PAMIDRONATE DISODIUM
     Indication: Hypercalcaemia of malignancy
     Dosage: 60 MILLIGRAM, RECEIVED 2 DOSES
     Route: 042

REACTIONS (1)
  - Drug ineffective [Unknown]
